FAERS Safety Report 24020189 (Version 3)
Quarter: 2024Q3

REPORT INFORMATION
  Report Type: Spontaneous
  Country: US (occurrence: US)
  Receive Date: 20240627
  Receipt Date: 20240723
  Transmission Date: 20241017
  Serious: Yes (Death, Hospitalization)
  Sender: JOHNSON AND JOHNSON
  Company Number: US-JNJFOC-20240656037

PATIENT
  Age: 61 Year
  Sex: Female

DRUGS (5)
  1. TYLENOL [Suspect]
     Active Substance: ACETAMINOPHEN
     Indication: Sciatica
     Route: 065
  2. TYLENOL [Suspect]
     Active Substance: ACETAMINOPHEN
     Indication: Back pain
  3. KETAMINE [Suspect]
     Active Substance: KETAMINE
     Indication: Pain management
     Dosage: DRIP
     Route: 065
     Dates: start: 20221021
  4. METFORMIN [Suspect]
     Active Substance: METFORMIN HYDROCHLORIDE
     Indication: Chronic kidney disease
     Route: 065
     Dates: start: 202210
  5. IBUPROFEN [Concomitant]
     Active Substance: IBUPROFEN
     Indication: Sciatica
     Route: 065

REACTIONS (11)
  - Hypoglycaemia [Fatal]
  - Cardiogenic shock [Fatal]
  - Renal failure [Fatal]
  - Blood glucose increased [Fatal]
  - Metabolic acidosis [Fatal]
  - Cardiac arrest [Fatal]
  - Brain death [Fatal]
  - Brain injury [Fatal]
  - Acute respiratory failure [Fatal]
  - Metabolic alkalosis [Fatal]
  - Drug ineffective [Unknown]

NARRATIVE: CASE EVENT DATE: 20221001
